FAERS Safety Report 9441567 (Version 2)
Quarter: 2015Q4

REPORT INFORMATION
  Report Type: Report from Study
  Country: US (occurrence: US)
  Receive Date: 20130805
  Receipt Date: 20151006
  Transmission Date: 20160305
  Serious: Yes (Other)
  Sender: FDA-Public Use
  Company Number: US-ROCHE-1256308

PATIENT
  Sex: Female
  Weight: 63.56 kg

DRUGS (7)
  1. ACTEMRA [Suspect]
     Active Substance: TOCILIZUMAB
     Dosage: HIGHER DOSE
     Route: 042
     Dates: start: 201306
  2. ACTEMRA [Suspect]
     Active Substance: TOCILIZUMAB
     Dosage: HIGHER DOSE
     Route: 042
     Dates: start: 201305
  3. ACTEMRA [Suspect]
     Active Substance: TOCILIZUMAB
     Dosage: HIGHER DOSE
     Route: 042
     Dates: start: 201304
  4. PREDNISONE. [Concomitant]
     Active Substance: PREDNISONE
  5. ACTEMRA [Suspect]
     Active Substance: TOCILIZUMAB
     Indication: RHEUMATOID ARTHRITIS
     Dosage: STARTED AT LOWER DOSE FOR 3 MONTH
     Route: 042
     Dates: start: 201209
  6. ACTEMRA [Suspect]
     Active Substance: TOCILIZUMAB
     Dosage: HIGHER DOSE
     Route: 042
     Dates: start: 201303
  7. METHOTREXATE [Concomitant]
     Active Substance: METHOTREXATE
     Indication: RHEUMATOID ARTHRITIS
     Route: 065

REACTIONS (2)
  - Cataract [Not Recovered/Not Resolved]
  - Arthropod bite [Unknown]
